FAERS Safety Report 12888144 (Version 1)
Quarter: 2016Q4

REPORT INFORMATION
  Report Type: Spontaneous
  Country: US (occurrence: US)
  Receive Date: 20161027
  Receipt Date: 20161027
  Transmission Date: 20170207
  Serious: Yes (Death, Other)
  Sender: FDA-Public Use
  Company Number: US-SHIRE-US201615701

PATIENT
  Age: 72 Year
  Sex: Female
  Weight: 47.17 kg

DRUGS (1)
  1. GATTEX [Suspect]
     Active Substance: TEDUGLUTIDE\WATER
     Indication: SHORT-BOWEL SYNDROME
     Dosage: 2.4 MG, 1X/DAY:QD
     Route: 058
     Dates: start: 201602

REACTIONS (2)
  - Death [Fatal]
  - Peripheral swelling [Unknown]

NARRATIVE: CASE EVENT DATE: 201607
